FAERS Safety Report 7831060-3 (Version None)
Quarter: 2011Q4

REPORT INFORMATION
  Report Type: 
  Country: None (occurrence: None)
  Receive Date: 20111021
  Receipt Date: 20111013
  Transmission Date: 20120403
  Serious: Yes (Other)
  Sender: FDA-Public Use
  Company Number: PHHY2011BR90860

PATIENT
  Age: 37 Year
  Sex: Male

DRUGS (1)
  1. RITALIN [Suspect]
     Indication: ATTENTION DEFICIT/HYPERACTIVITY DISORDER

REACTIONS (1)
  - NASAL DISCOMFORT [None]
